FAERS Safety Report 23116538 (Version 1)
Quarter: 2023Q4

REPORT INFORMATION
  Report Type: Report from Study
  Country: US (occurrence: None)
  Receive Date: 20231027
  Receipt Date: 20231027
  Transmission Date: 20240110
  Serious: Yes (Death, Other)
  Sender: FDA-Public Use
  Company Number: 2023A244360

PATIENT
  Sex: Female

DRUGS (7)
  1. LYNPARZA [Suspect]
     Active Substance: OLAPARIB
     Indication: Ovarian cancer
     Dosage: 300 MILLIGRAM
     Dates: start: 20230613
  2. KEYTRUDA [Suspect]
     Active Substance: PEMBROLIZUMAB
     Indication: Ovarian cancer
     Dosage: 200 MILLIGRAM, Q3W
     Route: 042
     Dates: start: 20221110
  3. KEYTRUDA [Suspect]
     Active Substance: PEMBROLIZUMAB
     Indication: Ovarian cancer
     Dosage: 200 MILLIGRAM, Q3W
     Route: 042
     Dates: start: 20230817, end: 20230817
  4. CARBOPLATIN [Suspect]
     Active Substance: CARBOPLATIN
     Indication: Ovarian cancer
     Dosage: UNK; 6 CYCLES
     Dates: start: 20210624, end: 2022
  5. CARBOPLATIN [Suspect]
     Active Substance: CARBOPLATIN
     Indication: Ovarian cancer
     Dosage: AUC= 4
     Dates: start: 20220804
  6. CARBOPLATIN [Suspect]
     Active Substance: CARBOPLATIN
     Indication: Ovarian cancer
     Dosage: AUC= 3
     Dates: start: 20220908
  7. CISPLATIN [Suspect]
     Active Substance: CISPLATIN
     Indication: Ovarian cancer
     Dosage: UNK
     Dates: start: 2022, end: 2023

REACTIONS (7)
  - Death [Fatal]
  - Pancytopenia [Unknown]
  - Incarcerated hernia [Unknown]
  - Thrombocytopenia [Unknown]
  - Malignant neoplasm progression [Unknown]
  - Microangiopathy [Unknown]
  - Hospice care [Unknown]

NARRATIVE: CASE EVENT DATE: 20230101
